FAERS Safety Report 17332433 (Version 4)
Quarter: 2020Q1

REPORT INFORMATION
  Report Type: Report from Study
  Country: None (occurrence: US)
  Receive Date: 20200128
  Receipt Date: 20200326
  Transmission Date: 20200409
  Serious: Yes (Death, Hospitalization)
  Sender: FDA-Public Use
  Company Number: US-ABBVIE-20K-163-3253434-00

PATIENT
  Age: 74 Year
  Sex: Male

DRUGS (2)
  1. VENCLEXTA [Suspect]
     Active Substance: VENETOCLAX
     Indication: LYMPHOCYTIC LEUKAEMIA
     Dosage: WITH A MEAL AND 8OZ OF WATER
     Route: 048
     Dates: end: 20200111
  2. VENCLEXTA [Suspect]
     Active Substance: VENETOCLAX
     Indication: CHRONIC LYMPHOCYTIC LEUKAEMIA

REACTIONS (3)
  - Dyspnoea [Fatal]
  - Pneumonia [Fatal]
  - Mobility decreased [Fatal]

NARRATIVE: CASE EVENT DATE: 202001
